FAERS Safety Report 5162668-4 (Version None)
Quarter: 2006Q4

REPORT INFORMATION
  Report Type: 
  Country: None (occurrence: None)
  Receive Date: 20061201
  Receipt Date: 20061128
  Transmission Date: 20070319
  Serious: Yes (Death, Hospitalization)
  Sender: FDA-Public Use
  Company Number: IE-AVENTIS-200622078GDDC

PATIENT
  Age: 27 Year
  Sex: Male

DRUGS (1)
  1. DESMOPRESSIN [Suspect]
     Indication: ENURESIS
     Route: 045

REACTIONS (7)
  - BRAIN CONTUSION [None]
  - COMA [None]
  - CONVULSION [None]
  - FALL [None]
  - HEAD INJURY [None]
  - HYPONATRAEMIA [None]
  - SUBDURAL HAEMATOMA [None]
